FAERS Safety Report 19500025 (Version 1)
Quarter: 2021Q3

REPORT INFORMATION
  Report Type: Other
  Country: CN (occurrence: CN)
  Receive Date: 20210707
  Receipt Date: 20210707
  Transmission Date: 20211014
  Serious: Yes (Other)
  Sender: FDA-Public Use
  Company Number: CN-ROCHE-2861820

PATIENT
  Age: 33 Year
  Sex: Female

DRUGS (4)
  1. DOCETAXEL. [Suspect]
     Active Substance: DOCETAXEL
     Indication: INVASIVE BREAST CARCINOMA
     Dosage: ON DAY 1
     Route: 041
     Dates: start: 20190614
  2. DOCETAXEL. [Suspect]
     Active Substance: DOCETAXEL
     Dosage: ON DAY 1; TOTAL 4 CYCLES
     Route: 041
     Dates: start: 201707, end: 201801
  3. CAPECITABINE. [Suspect]
     Active Substance: CAPECITABINE
     Indication: INVASIVE BREAST CARCINOMA
     Dosage: GIVEN FOR DAY1 ? 14, 21 DAYS FOR A CYCLE
     Route: 048
     Dates: start: 20190614
  4. CAPECITABINE. [Suspect]
     Active Substance: CAPECITABINE
     Dosage: GIVEN FOR DAY1 ? 14, 21 DAYS FOR A CYCLE
     Route: 048

REACTIONS (1)
  - Nail toxicity [Recovering/Resolving]
